FAERS Safety Report 12886513 (Version 4)
Quarter: 2016Q4

REPORT INFORMATION
  Report Type: Report from Study
  Country: None (occurrence: ES)
  Receive Date: 20161026
  Receipt Date: 20161125
  Transmission Date: 20170207
  Serious: Yes (Hospitalization)
  Sender: FDA-Public Use
  Company Number: ES-ABBVIE-16P-144-1759335-00

PATIENT
  Sex: Female

DRUGS (1)
  1. DUODOPA [Suspect]
     Active Substance: CARBIDOPA\LEVODOPA
     Indication: PARKINSON^S DISEASE
     Route: 050
     Dates: start: 20161014

REACTIONS (6)
  - Gait disturbance [Unknown]
  - Dyskinesia [Unknown]
  - Freezing phenomenon [Unknown]
  - Bronchitis [Recovered/Resolved]
  - Arthralgia [Unknown]
  - Mobility decreased [Unknown]

NARRATIVE: CASE EVENT DATE: 20161018
